FAERS Safety Report 8401181-5 (Version None)
Quarter: 2012Q2

REPORT INFORMATION
  Report Type: 
  Country: None (occurrence: None)
  Receive Date: 20120525
  Receipt Date: 20120514
  Transmission Date: 20120825
  Serious: Yes (Disabling, Other)
  Sender: FDA-Public Use
  Company Number: AUR-APL-2012-02236

PATIENT
  Age: 52 Year
  Sex: Female

DRUGS (3)
  1. QUETIAPINE FUMARATE [Concomitant]
  2. LITHIUM CARBONATE [Concomitant]
  3. CITALOPRAM HYDROBROMIDE [Suspect]
     Indication: BIPOLAR I DISORDER
     Dosage: 20 MG, ORAL; 60 MG, ORAL
     Route: 048
     Dates: end: 20111101

REACTIONS (1)
  - DEAFNESS NEUROSENSORY [None]
